FAERS Safety Report 8411579-7 (Version None)
Quarter: 2012Q2

REPORT INFORMATION
  Report Type: 
  Country: None (occurrence: None)
  Receive Date: 20120605
  Receipt Date: 20120509
  Transmission Date: 20120825
  Serious: No
  Sender: FDA-Public Use
  Company Number: US-AMGEN-USASP2012029621

PATIENT
  Age: 53 Year
  Sex: Female

DRUGS (10)
  1. LANTUS [Concomitant]
     Dosage: UNK
  2. GABAPENTIN [Concomitant]
     Dosage: UNK
  3. LEVOTHYROXINE SODIUM [Concomitant]
     Dosage: UNK
  4. CYMBALTA [Concomitant]
     Dosage: UNK
  5. OMEPRAZOLE [Concomitant]
     Dosage: UNK
  6. NOVOLOG [Concomitant]
     Dosage: UNK
  7. ETODOLAC [Concomitant]
     Dosage: UNK
  8. HYDROCODONE/ACETAMINOPHEN          /00607101/ [Concomitant]
     Dosage: UNK
  9. ENBREL [Suspect]
     Indication: PSORIASIS
     Dosage: 50 MG, QWK
     Dates: start: 20120312
  10. IBUPROFEN [Concomitant]
     Dosage: UNK

REACTIONS (4)
  - RASH ERYTHEMATOUS [None]
  - CUTANEOUS LUPUS ERYTHEMATOSUS [None]
  - INFLAMMATION [None]
  - PRURITUS [None]
